FAERS Safety Report 19164225 (Version 3)
Quarter: 2021Q3

REPORT INFORMATION
  Report Type: Report from Study
  Country: US (occurrence: US)
  Receive Date: 20210421
  Receipt Date: 20210728
  Transmission Date: 20211014
  Serious: Yes (Hospitalization)
  Sender: FDA-Public Use
  Company Number: US-ROCHE-2811316

PATIENT
  Age: 49 Year
  Sex: Male
  Weight: 75 kg

DRUGS (5)
  1. ALEVE [Concomitant]
     Active Substance: NAPROXEN SODIUM
     Dates: start: 20201101
  2. TYLENOL [Concomitant]
     Active Substance: ACETAMINOPHEN
     Dosage: TABLET, EXTENDED RELEASE ON 01?OC AT 8 HOURS
  3. COBIMETINIB. [Suspect]
     Active Substance: COBIMETINIB
     Indication: NON-SMALL CELL LUNG CANCER
     Dosage: DAY 1 AND DAY 2, LAST PRIOR TO THE EVENT ONSET ON 23/MAR/2021
     Route: 048
     Dates: start: 20210125
  4. ATIVAN [Concomitant]
     Active Substance: LORAZEPAM
     Dates: start: 20200713, end: 20210308
  5. MS CONTIN [Concomitant]
     Active Substance: MORPHINE SULFATE
     Dosage: MS CONTIN (MORPHINE SULFATE) TABLET, EXTENDED RELEASE ; 15?F

REACTIONS (1)
  - Pleural effusion [Recovered/Resolved]

NARRATIVE: CASE EVENT DATE: 20210324
